FAERS Safety Report 8492060 (Version 2)
Quarter: 2012Q4

REPORT INFORMATION
  Report Type: 
  Country: US (occurrence: US)
  Receive Date: 20120403
  Receipt Date: 20120830
  Transmission Date: 20130627
  Serious: Yes (Other)
  Sender: FDA-Public Use
  Company Number: US-BAYER-2012-029783

PATIENT
  Age: 26 Year
  Sex: Female
  Weight: 120.64 kg

DRUGS (2)
  1. YAZ [Suspect]
     Indication: PREMENSTRUAL SYNDROME
     Dosage: UNK
     Route: 048
     Dates: start: 20090619, end: 20090927
  2. YAZ [Suspect]
     Indication: VAGINAL HAEMORRHAGE

REACTIONS (6)
  - Cholelithiasis [None]
  - Cholecystitis chronic [None]
  - Choledocholithotomy [None]
  - Injury [None]
  - Pain [None]
  - Emotional distress [None]
